FAERS Safety Report 9127764 (Version 1)
Quarter: 2013Q1

REPORT INFORMATION
  Report Type: Spontaneous
  Country: GR (occurrence: GR)
  Receive Date: 20130125
  Receipt Date: 20130125
  Transmission Date: 20140127
  Serious: Yes (Other)
  Sender: FDA-Public Use
  Company Number: GR-ROCHE-1082182

PATIENT
  Age: 39 Year
  Sex: Female

DRUGS (2)
  1. RIVOTRIL [Suspect]
     Indication: CONVULSION
     Dosage: 1/2 TAB IN MORNING/EVENING AND 1/4 TAB MID-DAY
     Route: 048
     Dates: start: 201102
  2. RIVOTRIL [Suspect]
     Dosage: 1/4 TAB MIDDAY AND 1/2 TAB EVENING
     Route: 065

REACTIONS (5)
  - Gestational diabetes [Recovered/Resolved]
  - Pelvic fracture [Not Recovered/Not Resolved]
  - Fall [Unknown]
  - Dizziness [Unknown]
  - Exposure during pregnancy [Unknown]
